FAERS Safety Report 8165263-8 (Version None)
Quarter: 2012Q1

REPORT INFORMATION
  Report Type: 
  Country: None (occurrence: None)
  Receive Date: 20120222
  Receipt Date: 20120222
  Transmission Date: 20120608
  Serious: Yes (Other)
  Sender: FDA-Public Use
  Company Number: None

PATIENT
  Age: 58 Year
  Sex: Male
  Weight: 128.368 kg

DRUGS (1)
  1. AMLODIPINE BESYLATE [Suspect]
     Indication: HYPERTENSION
     Dosage: 1/2 TABLET = 5 MGS ONCE A DAY
     Dates: start: 20120123, end: 20120125

REACTIONS (4)
  - GASTRIC ULCER HAEMORRHAGE [None]
  - ABDOMINAL PAIN UPPER [None]
  - SWELLING FACE [None]
  - RASH [None]
